FAERS Safety Report 6428629-X (Version None)
Quarter: 2009Q4

REPORT INFORMATION
  Report Type: 
  Country: None (occurrence: None)
  Receive Date: 20091105
  Receipt Date: 20091027
  Transmission Date: 20100525
  Serious: No
  Sender: FDA-Public Use
  Company Number: US-B.I. PHARMACEUTICALS,INC./RIDGEFIELD-2009-BP-12482BP

PATIENT
  Age: 69 Year
  Sex: Male

DRUGS (8)
  1. FLOMAX [Suspect]
     Indication: BENIGN PROSTATIC HYPERPLASIA
     Route: 048
     Dates: start: 20090901
  2. FLOMAX [Suspect]
     Dosage: 0.4 MG
     Route: 048
     Dates: start: 20090801, end: 20090901
  3. ACTOS [Concomitant]
     Indication: DIABETES MELLITUS
  4. LISINOPRIL [Concomitant]
     Indication: HYPERTENSION
  5. PRAVASTATIN [Concomitant]
     Indication: BLOOD CHOLESTEROL INCREASED
  6. SAW PALMETTO [Concomitant]
     Indication: BENIGN PROSTATIC HYPERPLASIA
  7. GINKGO BILOBA [Concomitant]
     Indication: PROPHYLAXIS
  8. ASPIRIN [Concomitant]
     Indication: PROPHYLAXIS

REACTIONS (7)
  - DIZZINESS [None]
  - HEADACHE [None]
  - LIBIDO DECREASED [None]
  - NASAL CONGESTION [None]
  - POLLAKIURIA [None]
  - SINUSITIS [None]
  - VISION BLURRED [None]
